FAERS Safety Report 25174784 (Version 3)
Quarter: 2025Q2

REPORT INFORMATION
  Report Type: Report from Study
  Country: ES (occurrence: ES)
  Receive Date: 20250408
  Receipt Date: 20250527
  Transmission Date: 20250716
  Serious: Yes (Death, Life-Threatening, Hospitalization, Other)
  Sender: JOHNSON AND JOHNSON
  Company Number: ES-JNJFOC-20250371894

PATIENT
  Age: 69 Year
  Sex: Female
  Weight: 68.5 kg

DRUGS (1)
  1. TALQUETAMAB [Suspect]
     Active Substance: TALQUETAMAB
     Indication: Plasma cell myeloma refractory
     Route: 065
     Dates: start: 20230606, end: 20230613

REACTIONS (5)
  - Haemorrhage intracranial [Fatal]
  - Brain oedema [Unknown]
  - Thrombocytopenia [Unknown]
  - Cytokine release syndrome [Recovered/Resolved]
  - Immune effector cell-associated neurotoxicity syndrome [Unknown]

NARRATIVE: CASE EVENT DATE: 20230607
